FAERS Safety Report 8204133-3 (Version None)
Quarter: 2012Q1

REPORT INFORMATION
  Report Type: 
  Country: None (occurrence: None)
  Receive Date: 20120313
  Receipt Date: 20120305
  Transmission Date: 20120608
  Serious: Yes (Hospitalization, Other)
  Sender: FDA-Public Use
  Company Number: US-BAYER-2012-011571

PATIENT
  Age: 39 Year
  Sex: Female

DRUGS (5)
  1. YASMIN [Suspect]
     Indication: CONTRACEPTION
     Dosage: UNK
     Dates: start: 20060801, end: 20070101
  2. ATENOLOL [Concomitant]
     Dosage: 25 MG, UNK
  3. IRON [Concomitant]
  4. YASMIN [Suspect]
     Indication: METRORRHAGIA
  5. SYNTHROID [Concomitant]

REACTIONS (7)
  - PULMONARY INFARCTION [None]
  - GENERAL PHYSICAL HEALTH DETERIORATION [None]
  - PULMONARY EMBOLISM [None]
  - ANXIETY [None]
  - PAIN [None]
  - EMOTIONAL DISTRESS [None]
  - PHYSICAL DISABILITY [None]
